FAERS Safety Report 7318745-2 (Version None)
Quarter: 2011Q1

REPORT INFORMATION
  Report Type: 
  Country: None (occurrence: None)
  Receive Date: 20110228
  Receipt Date: 20100224
  Transmission Date: 20110831
  Serious: No
  Sender: FDA-Public Use
  Company Number: A0847379A

PATIENT
  Age: 43 Year
  Sex: Female

DRUGS (4)
  1. XANAX [Concomitant]
  2. IMITREX [Suspect]
     Indication: MIGRAINE
     Route: 042
  3. UNKNOWN STOMACH MEDICATION [Concomitant]
  4. CLONAZEPAM [Concomitant]

REACTIONS (2)
  - BLOOD PRESSURE INCREASED [None]
  - FEELING HOT [None]
